FAERS Safety Report 7750227-6 (Version None)
Quarter: 2011Q3

REPORT INFORMATION
  Report Type: 
  Country: None (occurrence: None)
  Receive Date: 20110912
  Receipt Date: 20110826
  Transmission Date: 20111222
  Serious: Yes (Other)
  Sender: FDA-Public Use
  Company Number: GR-ACCORD-010490

PATIENT
  Age: 52 Year
  Sex: Male

DRUGS (3)
  1. GEMCITABINE [Suspect]
     Indication: ADENOCARCINOMA PANCREAS
     Dosage: 1000.00-MG/M2-28. 0DAYS
  2. METHYLPREDNISOLONE [Concomitant]
  3. ERLOTINIB HYDROCHLORIDE [Concomitant]

REACTIONS (9)
  - BLOOD LACTATE DEHYDROGENASE INCREASED [None]
  - DISEASE PROGRESSION [None]
  - POLYMYOSITIS [None]
  - OEDEMA PERIPHERAL [None]
  - PAIN [None]
  - ALANINE AMINOTRANSFERASE INCREASED [None]
  - MUSCULAR WEAKNESS [None]
  - PANCREATIC CARCINOMA [None]
  - ASPARTATE AMINOTRANSFERASE INCREASED [None]
